FAERS Safety Report 13667851 (Version 1)
Quarter: 2017Q2

REPORT INFORMATION
  Report Type: Spontaneous
  Country: US (occurrence: US)
  Receive Date: 20170619
  Receipt Date: 20170619
  Transmission Date: 20170830
  Serious: No
  Sender: FDA-Public Use
  Company Number: None

PATIENT
  Sex: Female

DRUGS (1)
  1. TALTZ [Suspect]
     Active Substance: IXEKIZUMAB
     Indication: PRODUCT USED FOR UNKNOWN INDICATION
     Dosage: WE SHIPPED IN FEB OF 2017, BUT PT STATES SHE^S BEEN TAKING FOR OVER A YEAR TO ONGOING
     Route: 058

REACTIONS (3)
  - Device malfunction [None]
  - Device leakage [None]
  - Accidental exposure to product [None]
